FAERS Safety Report 5429469-0 (Version None)
Quarter: 2007Q3

REPORT INFORMATION
  Report Type: 
  Country: None (occurrence: None)
  Receive Date: 20070829
  Receipt Date: 20070824
  Transmission Date: 20080115
  Serious: Yes (Hospitalization)
  Sender: FDA-Public Use
  Company Number: A0676148A

PATIENT
  Age: 71 Year
  Sex: Male

DRUGS (5)
  1. ADVAIR DISKUS 100/50 [Suspect]
     Indication: ASTHMA
     Dosage: 1PUFF TWICE PER DAY
     Route: 055
     Dates: start: 20010101
  2. MULTI-VITAMIN [Concomitant]
  3. SYNTHROID [Concomitant]
  4. FELODIPINE [Concomitant]
  5. FLUTICASONE NASAL SPRAY [Concomitant]

REACTIONS (2)
  - BLOOD POTASSIUM DECREASED [None]
  - THYROID CANCER [None]
